APPROVED DRUG PRODUCT: KANAMYCIN SULFATE
Active Ingredient: KANAMYCIN SULFATE
Strength: EQ 1GM BASE/3ML
Dosage Form/Route: INJECTABLE;INJECTION
Application: A062669 | Product #001
Applicant: PHARMAFAIR INC
Approved: May 7, 1987 | RLD: No | RS: No | Type: DISCN